FAERS Safety Report 7448087-6 (Version None)
Quarter: 2011Q2

REPORT INFORMATION
  Report Type: 
  Country: None (occurrence: None)
  Receive Date: 20110429
  Receipt Date: 20100310
  Transmission Date: 20111010
  Serious: No
  Sender: FDA-Public Use
  Company Number: US-ASTRAZENECA-2010SE10431

PATIENT
  Age: 44 Year
  Sex: Male
  Weight: 136.1 kg

DRUGS (6)
  1. METFORMIN [Concomitant]
     Indication: DIABETES MELLITUS
  2. ASPIRIN [Concomitant]
  3. PLAVIX [Concomitant]
     Indication: STENT PLACEMENT
  4. METOPROLOL SUCCINATE [Concomitant]
  5. NEXIUM [Suspect]
     Indication: ABDOMINAL PAIN
     Route: 048
     Dates: start: 20100304, end: 20100309
  6. BYETTA [Concomitant]

REACTIONS (3)
  - BLOOD PRESSURE INCREASED [None]
  - CHEST DISCOMFORT [None]
  - MALAISE [None]
